FAERS Safety Report 12297785 (Version 1)
Quarter: 2016Q2

REPORT INFORMATION
  Report Type: Report from Study
  Country: IT (occurrence: IT)
  Receive Date: 20160422
  Receipt Date: 20160422
  Transmission Date: 20160815
  Serious: Yes (Other)
  Sender: FDA-Public Use
  Company Number: IT-BRISTOL-MYERS SQUIBB COMPANY-BMS-2016-029170

PATIENT
  Age: 56 Year
  Sex: Male

DRUGS (1)
  1. DACLATASVIR DIHYDROCHLORIDE [Suspect]
     Active Substance: DACLATASVIR DIHYDROCHLORIDE
     Indication: CHRONIC HEPATITIS C
     Dosage: UNK
     Route: 065

REACTIONS (6)
  - Nausea [Unknown]
  - Jaundice [Unknown]
  - Fatigue [Unknown]
  - Abdominal pain [Unknown]
  - Gallbladder disorder [Unknown]
  - Cholelithiasis [Unknown]
